FAERS Safety Report 16988500 (Version 1)
Quarter: 2019Q4

REPORT INFORMATION
  Report Type: Spontaneous
  Country: US (occurrence: US)
  Receive Date: 20191104
  Receipt Date: 20191104
  Transmission Date: 20200122
  Serious: No
  Sender: FDA-Public Use
  Company Number: US-BAYER-2019-198180

PATIENT

DRUGS (2)
  1. PAIN [Concomitant]
     Active Substance: UNSPECIFIED INGREDIENT
  2. MIRALAX [Suspect]
     Active Substance: POLYETHYLENE GLYCOL 3350
     Indication: CONSTIPATION
     Dosage: 17 G IN 4-8OZ OF LIQUID DOSE
     Route: 048

REACTIONS (1)
  - Drug ineffective [Unknown]
